FAERS Safety Report 8893472 (Version 1)
Quarter: 2012Q4

REPORT INFORMATION
  Report Type: 
  Country: US (occurrence: US)
  Receive Date: 20121107
  Receipt Date: 20121107
  Transmission Date: 20130627
  Serious: No
  Sender: FDA-Public Use
  Company Number: US-AMGEN-USASP2011060714

PATIENT
  Age: 54 Year
  Sex: Female
  Weight: 64.4 kg

DRUGS (9)
  1. ENBREL [Suspect]
     Dosage: 50 mg, qwk
  2. FLOVENT [Concomitant]
  3. DOXYCYCLINE [Concomitant]
  4. TYLENOL /00020001/ [Concomitant]
  5. MULTIVITAMIN                       /00097801/ [Concomitant]
  6. DICLOFENAC [Concomitant]
  7. VESICARE [Concomitant]
  8. TRAZODONE [Concomitant]
  9. FLUOXETINE [Concomitant]

REACTIONS (2)
  - Pruritus [Unknown]
  - Urticaria [Unknown]
